FAERS Safety Report 16835772 (Version 1)
Quarter: 2019Q3

REPORT INFORMATION
  Report Type: Spontaneous
  Country: US (occurrence: US)
  Receive Date: 20190920
  Receipt Date: 20190920
  Transmission Date: 20191005
  Serious: Yes (Hospitalization)
  Sender: FDA-Public Use
  Company Number: US-ALLERGAN-1938145US

PATIENT
  Sex: Female

DRUGS (1)
  1. BOTOX [Suspect]
     Active Substance: ONABOTULINUMTOXINA
     Indication: TORTICOLLIS
     Dosage: UNK, SINGLE
     Dates: start: 20190912, end: 20190912

REACTIONS (3)
  - Cardio-respiratory arrest [Recovered/Resolved]
  - Dyspnoea [Unknown]
  - Dysphagia [Unknown]

NARRATIVE: CASE EVENT DATE: 201909
